FAERS Safety Report 18056339 (Version 2)
Quarter: 2021Q1

REPORT INFORMATION
  Report Type: Report from Study
  Country: FR (occurrence: FR)
  Receive Date: 20200722
  Receipt Date: 20210317
  Transmission Date: 20210419
  Serious: Yes (Hospitalization, Other)
  Sender: FDA-Public Use
  Company Number: FR-TEVA-2020-FR-1244612

PATIENT
  Age: 58 Year
  Sex: Male
  Weight: 44 kg

DRUGS (15)
  1. BENDAMUSTINE HYDROCHLORIDE. [Suspect]
     Active Substance: BENDAMUSTINE HYDROCHLORIDE
     Dosage: (CYCLE 5)
     Route: 042
     Dates: start: 20200616
  2. RITUXIMAB. [Suspect]
     Active Substance: RITUXIMAB
     Indication: DIFFUSE LARGE B-CELL LYMPHOMA
     Dosage: (CYCLE 1)
     Route: 041
     Dates: start: 20200228
  3. RITUXIMAB. [Suspect]
     Active Substance: RITUXIMAB
     Dosage: (CYCLE 2)
     Route: 041
     Dates: start: 20200320
  4. POLATUZUMAB VEDOTIN. [Suspect]
     Active Substance: POLATUZUMAB VEDOTIN
     Dosage: (EVERY 3 WEEKS, CYCLE 5)
     Route: 042
     Dates: start: 20200616
  5. BENDAMUSTINE HYDROCHLORIDE. [Suspect]
     Active Substance: BENDAMUSTINE HYDROCHLORIDE
     Dosage: (CYCLE 2)
     Route: 042
     Dates: start: 20200320
  6. RITUXIMAB. [Suspect]
     Active Substance: RITUXIMAB
     Dosage: (CYCLE 4)
     Route: 041
     Dates: start: 20200519
  7. RITUXIMAB. [Suspect]
     Active Substance: RITUXIMAB
     Dosage: (CYCLE 5)
     Route: 041
     Dates: start: 20200616
  8. POLATUZUMAB VEDOTIN. [Suspect]
     Active Substance: POLATUZUMAB VEDOTIN
     Dosage: (EVERY 3 WEEKS, CYCLE 2)
     Route: 042
     Dates: start: 20200320
  9. POLATUZUMAB VEDOTIN. [Suspect]
     Active Substance: POLATUZUMAB VEDOTIN
     Dosage: (EVERY 3 WEEKS, CYCLE 3)
     Route: 042
     Dates: start: 20200414
  10. BENDAMUSTINE HYDROCHLORIDE. [Suspect]
     Active Substance: BENDAMUSTINE HYDROCHLORIDE
     Dosage: (CYCLE 4)
     Route: 042
     Dates: start: 20200519
  11. BENDAMUSTINE HYDROCHLORIDE. [Suspect]
     Active Substance: BENDAMUSTINE HYDROCHLORIDE
     Dosage: (CYCLE 3)
     Route: 042
     Dates: start: 20200414
  12. POLATUZUMAB VEDOTIN. [Suspect]
     Active Substance: POLATUZUMAB VEDOTIN
     Dosage: (EVERY 3 WEEKS, CYCLE 4)
     Route: 042
     Dates: start: 20200519
  13. BENDAMUSTINE HYDROCHLORIDE. [Suspect]
     Active Substance: BENDAMUSTINE HYDROCHLORIDE
     Indication: DIFFUSE LARGE B-CELL LYMPHOMA
     Dosage: CYCLIC (CYCLE 1)
     Route: 042
  14. POLATUZUMAB VEDOTIN. [Suspect]
     Active Substance: POLATUZUMAB VEDOTIN
     Indication: DIFFUSE LARGE B-CELL LYMPHOMA
     Dosage: (EVERY 3 WEEKS, CYCLE 1)
     Route: 042
     Dates: start: 20200228
  15. RITUXIMAB. [Suspect]
     Active Substance: RITUXIMAB
     Dosage: (CYCLE 3)
     Route: 041
     Dates: start: 20200414

REACTIONS (7)
  - Thrombocytopenia [Not Recovered/Not Resolved]
  - Product use in unapproved indication [Unknown]
  - Neutropenia [Recovered/Resolved]
  - Anaemia [Not Recovered/Not Resolved]
  - Infection [Recovered/Resolved]
  - Haemorrhoids [Recovered/Resolved with Sequelae]
  - Rectal haemorrhage [Recovered/Resolved with Sequelae]

NARRATIVE: CASE EVENT DATE: 20200314
